FAERS Safety Report 23548898 (Version 1)
Quarter: 2024Q1

REPORT INFORMATION
  Report Type: Spontaneous
  Country: IT (occurrence: IT)
  Receive Date: 20240221
  Receipt Date: 20240221
  Transmission Date: 20240410
  Serious: Yes (Other)
  Sender: FDA-Public Use
  Company Number: None

PATIENT
  Age: 40 Year
  Sex: Female

DRUGS (3)
  1. OXALIPLATIN [Suspect]
     Active Substance: OXALIPLATIN
     Indication: Colon cancer
     Dosage: 4TH CYCLE/2ND DAY OXALIPLATIN TEVA* 200MG 40ML ADMINISTERED AT A DOSAGE OF 120 MG I.V. (ON THE SE...
     Route: 042
     Dates: start: 20231020
  2. VEGZELMA [Suspect]
     Active Substance: BEVACIZUMAB-ADCD
     Indication: Metastasis
     Dosage: 4TH CYCLE/1ST DAY VEGZELMA* INF 1FL 4ML 25MG/ML; ADMINISTERED AT A DOSAGE OF 250 MG IV; PROTOCOL:...
     Route: 042
     Dates: start: 20231019
  3. FLUOROURACIL [Suspect]
     Active Substance: FLUOROURACIL
     Indication: Metastasis
     Dosage: 4TH CYCLE/1ST-2ND DAY TEVA FLUOROURACIL* 5G 100ML; IN BOLUS 300 MG IV, IN ELASTOMERIC PUMP 1,500 ...
     Route: 042
     Dates: start: 20231019

REACTIONS (2)
  - Leukopenia [Recovering/Resolving]
  - Neutropenia [Recovering/Resolving]

NARRATIVE: CASE EVENT DATE: 20231211
